FAERS Safety Report 16883707 (Version 1)
Quarter: 2019Q4

REPORT INFORMATION
  Report Type: Spontaneous
  Country: GB (occurrence: GB)
  Receive Date: 20191004
  Receipt Date: 20191004
  Transmission Date: 20200122
  Serious: Yes (Other)
  Sender: FDA-Public Use
  Company Number: GB-TEVA-2019-GB-1117607

PATIENT
  Age: 47 Year
  Sex: Female
  Weight: 60 kg

DRUGS (2)
  1. CLARITHROMYCIN. [Suspect]
     Active Substance: CLARITHROMYCIN
     Indication: THROMBOPHLEBITIS SUPERFICIAL
     Dosage: 250 MG
     Route: 048
     Dates: start: 20190903
  2. NAPROXEN. [Suspect]
     Active Substance: NAPROXEN
     Indication: THROMBOPHLEBITIS SUPERFICIAL
     Dosage: 500 MG
     Route: 048
     Dates: start: 20190903, end: 20190906

REACTIONS (6)
  - Nausea [Recovered/Resolved]
  - Vulvovaginal candidiasis [Not Recovered/Not Resolved]
  - Dysgeusia [Recovering/Resolving]
  - Dyspepsia [Recovered/Resolved]
  - Decreased appetite [Recovered/Resolved]
  - Constipation [Not Recovered/Not Resolved]

NARRATIVE: CASE EVENT DATE: 20190904
